FAERS Safety Report 6642770-8 (Version None)
Quarter: 2010Q1

REPORT INFORMATION
  Report Type: 
  Country: None (occurrence: None)
  Receive Date: 20100319
  Receipt Date: 20100318
  Transmission Date: 20100710
  Serious: Yes (Hospitalization)
  Sender: FDA-Public Use
  Company Number: US-CEPHALON-2010001571

PATIENT
  Sex: Male
  Weight: 66 kg

DRUGS (3)
  1. FENTANYL CITRATE [Suspect]
     Indication: BACK PAIN
     Route: 002
     Dates: start: 20100205
  2. FENTANYL CITRATE [Suspect]
     Dates: start: 20050101
  3. MEDICAL MARIJUANA [Concomitant]

REACTIONS (5)
  - ANXIETY [None]
  - DEPRESSION [None]
  - DRUG INEFFECTIVE FOR UNAPPROVED INDICATION [None]
  - DRUG PRESCRIBING ERROR [None]
  - PANIC ATTACK [None]
